FAERS Safety Report 4954645-0 (Version None)
Quarter: 2006Q1

REPORT INFORMATION
  Report Type: 
  Country: None (occurrence: None)
  Receive Date: 20060327
  Receipt Date: 20060125
  Transmission Date: 20060701
  Serious: Yes (Other)
  Sender: FDA-Public Use
  Company Number: JP-ROCHE-434875

PATIENT
  Age: 24 Month
  Sex: Female
  Weight: 14 kg

DRUGS (5)
  1. TAMIFLU [Suspect]
     Route: 048
     Dates: start: 20060118, end: 20060120
  2. ASVERIN [Suspect]
     Indication: INFLUENZA
     Route: 048
     Dates: start: 20060108, end: 20060121
  3. PERIACTIN [Concomitant]
     Dosage: DOSE FORM REPORTED AS ORAL FORMULATION (NOT OTHERWISE SPECIFIED)
     Route: 048
     Dates: start: 20060118, end: 20060127
  4. MUCODYNE [Concomitant]
     Route: 048
     Dates: start: 20060118, end: 20060127
  5. MEPTIN [Concomitant]
     Route: 048
     Dates: start: 20060118, end: 20060127

REACTIONS (1)
  - HAEMATURIA [None]
